FAERS Safety Report 17691661 (Version 1)
Quarter: 2020Q2

REPORT INFORMATION
  Report Type: Spontaneous
  Country: US (occurrence: US)
  Receive Date: 20200422
  Receipt Date: 20200422
  Transmission Date: 20200714
  Serious: No
  Sender: FDA-Public Use
  Company Number: US-LUPIN PHARMACEUTICALS INC.-2020-01300

PATIENT
  Age: 25 Year
  Sex: Female
  Weight: 70.3 kg

DRUGS (1)
  1. GAVILYTE G [Suspect]
     Active Substance: POLYETHYLENE GLYCOL 3350\POTASSIUM CHLORIDE\SODIUM BICARBONATE\SODIUM CHLORIDE\SODIUM SULFATE ANHYDROUS
     Indication: CONSTIPATION
     Dosage: 236 GRAM, SINGLE
     Route: 048
     Dates: start: 20200301, end: 20200301

REACTIONS (5)
  - Off label use [Unknown]
  - Abdominal distension [Unknown]
  - Gastrointestinal sounds abnormal [Recovering/Resolving]
  - Flatulence [Unknown]
  - Abdominal pain [Recovering/Resolving]

NARRATIVE: CASE EVENT DATE: 202003
